FAERS Safety Report 26084115 (Version 2)
Quarter: 2025Q4

REPORT INFORMATION
  Report Type: Spontaneous
  Country: EU (occurrence: EU)
  Receive Date: 20251124
  Receipt Date: 20251127
  Transmission Date: 20260117
  Serious: Yes (Other)
  Sender: TAKEDA
  Company Number: EU-INCYTE CORPORATION-2025IN012850

PATIENT
  Age: 57 Year
  Sex: Female

DRUGS (10)
  1. ICLUSIG [Suspect]
     Active Substance: PONATINIB HYDROCHLORIDE
     Indication: Blast crisis in myelogenous leukaemia
     Dosage: UNK
  2. ICLUSIG [Suspect]
     Active Substance: PONATINIB HYDROCHLORIDE
     Indication: Chronic myeloid leukaemia
  3. CYTARABINE [Suspect]
     Active Substance: CYTARABINE
     Indication: Blast crisis in myelogenous leukaemia
     Dosage: UNK
  4. CYTARABINE [Suspect]
     Active Substance: CYTARABINE
     Indication: Chronic myeloid leukaemia
  5. FLUDARABINE [Suspect]
     Active Substance: FLUDARABINE PHOSPHATE
     Indication: Blast crisis in myelogenous leukaemia
     Dosage: UNK
  6. FLUDARABINE [Suspect]
     Active Substance: FLUDARABINE PHOSPHATE
     Indication: Chronic myeloid leukaemia
  7. GRANULOCYTE COLONY-STIMULATING FACTOR NOS [Suspect]
     Active Substance: GRANULOCYTE COLONY-STIMULATING FACTOR NOS
     Indication: Blast crisis in myelogenous leukaemia
     Dosage: UNK
  8. GRANULOCYTE COLONY-STIMULATING FACTOR NOS [Suspect]
     Active Substance: GRANULOCYTE COLONY-STIMULATING FACTOR NOS
     Indication: Chronic myeloid leukaemia
  9. IDARUBICIN [Suspect]
     Active Substance: IDARUBICIN
     Indication: Blast crisis in myelogenous leukaemia
     Dosage: UNK
  10. IDARUBICIN [Suspect]
     Active Substance: IDARUBICIN
     Indication: Chronic myeloid leukaemia

REACTIONS (3)
  - Haematotoxicity [Unknown]
  - Febrile neutropenia [Unknown]
  - Central nervous system leukaemia [Unknown]
